FAERS Safety Report 15722826 (Version 2)
Quarter: 2019Q1

REPORT INFORMATION
  Report Type: Report from Study
  Country: US (occurrence: US)
  Receive Date: 20181214
  Receipt Date: 20190130
  Transmission Date: 20190417
  Serious: Yes (Death)
  Sender: FDA-Public Use
  Company Number: US-PFIZER INC-2018512481

PATIENT

DRUGS (2)
  1. BUSULFAN. [Suspect]
     Active Substance: BUSULFAN
     Indication: PLASMA CELL MYELOMA
     Dosage: 0.8 MG/KG, 4X/DAY (16 DOSES (DAYS -8 THROUGH -4)
     Route: 042
  2. CYCLOPHOSPHAMIDE. [Concomitant]
     Active Substance: CYCLOPHOSPHAMIDE
     Indication: PLASMA CELL MYELOMA
     Dosage: 60 MG/KG, EVERY 4 HRS (OVER 4 HOURSX2DAYS) (DAYS-3 AND -2)
     Route: 042

REACTIONS (1)
  - Pulmonary toxicity [Fatal]
